FAERS Safety Report 13882313 (Version 2)
Quarter: 2017Q3

REPORT INFORMATION
  Report Type: Report from Study
  Country: TW (occurrence: TW)
  Receive Date: 20170818
  Receipt Date: 20170913
  Transmission Date: 20171127
  Serious: Yes (Hospitalization, Other)
  Sender: FDA-Public Use
  Company Number: TW-UCBSA-2017031467

PATIENT
  Sex: Male
  Weight: 75 kg

DRUGS (13)
  1. VALPROATE SODIUM. [Concomitant]
     Active Substance: VALPROATE SODIUM
     Indication: EPILEPSY
     Dosage: 250 MG, 3X/DAY (TID)
     Route: 048
     Dates: start: 20170323
  2. SULPIRIDE [Concomitant]
     Active Substance: SULPIRIDE
     Indication: PEPTIC ULCER
     Dosage: 200 MG, 2X/DAY (BID)
     Route: 048
     Dates: start: 20151210
  3. CLONAZEPAM. [Concomitant]
     Active Substance: CLONAZEPAM
     Indication: EPILEPSY
     Dosage: 0.5 MG, AS NEEDED (PRN)
     Route: 048
     Dates: start: 20170213
  4. PYRIDOXINE [Concomitant]
     Active Substance: PYRIDOXINE
     Indication: VITAMIN B6 DEFICIENCY
     Dosage: 50 MG, ONCE DAILY (QD)
     Route: 048
     Dates: start: 20160225
  5. PIRACETAM [Concomitant]
     Active Substance: PIRACETAM
     Indication: CEREBROVASCULAR INSUFFICIENCY
     Dosage: 1200 MG, ONCE DAILY (QD)
     Route: 048
     Dates: start: 20151212
  6. DEPAKINE [Concomitant]
     Active Substance: VALPROATE SODIUM
     Dosage: TAPERED DOWN
     Dates: start: 201702
  7. RIVOTRIL [Concomitant]
     Active Substance: CLONAZEPAM
     Indication: PRODUCT USED FOR UNKNOWN INDICATION
  8. KEPPRA [Suspect]
     Active Substance: LEVETIRACETAM
     Indication: PRODUCT USED FOR UNKNOWN INDICATION
     Dosage: 750 MG, 2X/DAY (BID)
  9. TOPIRAMATE. [Concomitant]
     Active Substance: TOPIRAMATE
     Indication: EPILEPSY
     Dosage: 100 MG, 3X/DAY (TID)
     Route: 048
     Dates: start: 20170210
  10. LACOSAMIDE. [Suspect]
     Active Substance: LACOSAMIDE
     Indication: EPILEPSY
     Dosage: 100 MG, 2X/DAY (BID)
     Route: 048
     Dates: start: 201701
  11. LEVETIRACETAM. [Concomitant]
     Active Substance: LEVETIRACETAM
     Indication: EPILEPSY
     Dosage: 750 MG, 2X/DAY (BID)
     Route: 048
     Dates: start: 20160204
  12. DEPAKINE [Concomitant]
     Active Substance: VALPROATE SODIUM
     Indication: PRODUCT USED FOR UNKNOWN INDICATION
     Dosage: UNK
  13. DEPAKINE [Concomitant]
     Active Substance: VALPROATE SODIUM
     Dosage: 0.5 BID

REACTIONS (8)
  - Memory impairment [Unknown]
  - Hallucination [Recovering/Resolving]
  - Psychotic disorder [Unknown]
  - Persecutory delusion [Unknown]
  - Tremor [Recovering/Resolving]
  - Generalised tonic-clonic seizure [Unknown]
  - Seizure [Unknown]
  - Nephrolithiasis [Unknown]

NARRATIVE: CASE EVENT DATE: 2017
